FAERS Safety Report 19109552 (Version 1)
Quarter: 2021Q2

REPORT INFORMATION
  Report Type: Report from Study
  Country: None (occurrence: US)
  Receive Date: 20210408
  Receipt Date: 20210408
  Transmission Date: 20210717
  Serious: Yes (Other)
  Sender: FDA-Public Use
  Company Number: US-ABBVIE-21K-163-3845034-00

PATIENT
  Sex: Female

DRUGS (2)
  1. HUMIRA [Suspect]
     Active Substance: ADALIMUMAB
     Route: 058
     Dates: start: 20210331
  2. HUMIRA [Suspect]
     Active Substance: ADALIMUMAB
     Indication: RHEUMATOID ARTHRITIS
     Route: 058
     Dates: start: 202007, end: 2021

REACTIONS (10)
  - Anxiety [Unknown]
  - Injection site erythema [Not Recovered/Not Resolved]
  - Cartilage injury [Unknown]
  - Fall [Unknown]
  - Rotator cuff syndrome [Unknown]
  - Arthropathy [Not Recovered/Not Resolved]
  - Injection site warmth [Not Recovered/Not Resolved]
  - Nasopharyngitis [Unknown]
  - Depression [Unknown]
  - Injection site swelling [Not Recovered/Not Resolved]

NARRATIVE: CASE EVENT DATE: 2020
